FAERS Safety Report 11257037 (Version 1)
Quarter: 2015Q3

REPORT INFORMATION
  Report Type: Spontaneous
  Country: US (occurrence: US)
  Receive Date: 20150709
  Receipt Date: 20150709
  Transmission Date: 20151125
  Serious: No
  Sender: FDA-Public Use
  Company Number: US-PURDUE-USA-2014-0115841

PATIENT
  Sex: Male

DRUGS (2)
  1. BUTRANS [Suspect]
     Active Substance: BUPRENORPHINE
     Indication: PAIN
     Dosage: 15 MCG/HR, WEEKLY
     Route: 062
     Dates: start: 2013
  2. BUTRANS [Suspect]
     Active Substance: BUPRENORPHINE
     Dosage: 10 MCG/HR, WEEKLY
     Route: 062
     Dates: start: 2012

REACTIONS (8)
  - Drug ineffective [Unknown]
  - Application site rash [Unknown]
  - Product adhesion issue [Unknown]
  - Pruritus [Unknown]
  - Application site irritation [Recovered/Resolved]
  - Application site swelling [Unknown]
  - Application site erythema [Unknown]
  - Dermatitis contact [Unknown]
